FAERS Safety Report 5615776-5 (Version None)
Quarter: 2008Q1

REPORT INFORMATION
  Report Type: 
  Country: None (occurrence: None)
  Receive Date: 20080131
  Receipt Date: 20080123
  Transmission Date: 20080703
  Serious: Yes (Other)
  Sender: FDA-Public Use
  Company Number: CHPA2008US01418

PATIENT
  Age: 4 Year
  Sex: Female
  Weight: 18.1 kg

DRUGS (2)
  1. TRIAMINIC CHEST + NASAL CONGESTION (NCH)(GUAIFENESIN, PHENYLEPHRINE HY [Suspect]
     Indication: RHINORRHOEA
     Dosage: ORAL
     Route: 048
     Dates: start: 20080120
  2. MOTRIN [Suspect]
     Indication: PYREXIA

REACTIONS (3)
  - OEDEMA PERIPHERAL [None]
  - RASH [None]
  - RENAL DISORDER [None]
